FAERS Safety Report 7415087-1 (Version None)
Quarter: 2011Q2

REPORT INFORMATION
  Report Type: 
  Country: None (occurrence: None)
  Receive Date: 20110414
  Receipt Date: 20110408
  Transmission Date: 20111010
  Serious: Yes (Hospitalization)
  Sender: FDA-Public Use
  Company Number: RU-ROCHE-770316

PATIENT
  Age: 63 Year
  Sex: Female
  Weight: 100 kg

DRUGS (2)
  1. BONIVA [Suspect]
     Indication: OSTEOPOROSIS
     Route: 042
     Dates: start: 20110101, end: 20110101
  2. BONIVA [Suspect]
     Dosage: START DATE: APR 2011, STOP DATE: APR 2011
     Route: 048

REACTIONS (3)
  - RENAL PAIN [None]
  - INFLUENZA LIKE ILLNESS [None]
  - BACK PAIN [None]
